FAERS Safety Report 5603605-5 (Version None)
Quarter: 2008Q1

REPORT INFORMATION
  Report Type: 
  Country: None (occurrence: None)
  Receive Date: 20080122
  Receipt Date: 20071115
  Transmission Date: 20080703
  Serious: Yes (Other)
  Sender: FDA-Public Use
  Company Number: MK-6030513

PATIENT
  Age: 25 Year
  Sex: Female

DRUGS (3)
  1. AMNESTEEM [Suspect]
     Indication: ACNE
     Dosage: 40 MG; TWICE A DAY; ORAL, 40 MG; EVERY OTHER DAY, 40 MG; TWICE A DAY
     Route: 048
     Dates: end: 20070216
  2. AMNESTEEM [Suspect]
     Indication: ACNE
     Dosage: 40 MG; TWICE A DAY; ORAL, 40 MG; EVERY OTHER DAY, 40 MG; TWICE A DAY
     Route: 048
     Dates: start: 20060817
  3. AMNESTEEM [Suspect]
     Indication: ACNE
     Dosage: 20 MG; EVERY OTHER DAY; ORAL
     Route: 048

REACTIONS (3)
  - ABORTION INDUCED [None]
  - DRUG EXPOSURE DURING PREGNANCY [None]
  - PREGNANCY [None]
